FAERS Safety Report 11773493 (Version 1)
Quarter: 2015Q4

REPORT INFORMATION
  Report Type: Spontaneous
  Country: NL (occurrence: NL)
  Receive Date: 20151124
  Receipt Date: 20151124
  Transmission Date: 20160304
  Serious: Yes (Other)
  Sender: FDA-Public Use
  Company Number: NL-TEVA-611006ISR

PATIENT
  Age: 65 Year
  Sex: Male

DRUGS (2)
  1. CISPLATIN. [Suspect]
     Active Substance: CISPLATIN
     Dosage: 1 MILLIGRAM/MILLILITERS DAILY;
     Route: 065
  2. GEMCITABINE [Suspect]
     Active Substance: GEMCITABINE\GEMCITABINE HYDROCHLORIDE
     Dosage: 200 MILLIGRAM DAILY;
     Route: 065

REACTIONS (2)
  - Peripheral artery thrombosis [Unknown]
  - Peripheral coldness [Unknown]
